FAERS Safety Report 4915730-2 (Version None)
Quarter: 2006Q1

REPORT INFORMATION
  Report Type: 
  Country: None (occurrence: None)
  Receive Date: 20060217
  Receipt Date: 20060203
  Transmission Date: 20060701
  Serious: Yes (Hospitalization)
  Sender: FDA-Public Use
  Company Number: CH-JNJFOC-20060200695

PATIENT
  Sex: Female
  Weight: 72 kg

DRUGS (1)
  1. DURAGESIC-100 [Suspect]
     Indication: PAIN
     Dosage: PATCH CUT IN HALF
     Route: 062
     Dates: start: 20050722, end: 20050723

REACTIONS (3)
  - DERMATITIS ALLERGIC [None]
  - PRURITUS [None]
  - URTICARIA [None]
